FAERS Safety Report 10871963 (Version 2)
Quarter: 2015Q1

REPORT INFORMATION
  Report Type: Report from Study
  Country: ZA (occurrence: ZA)
  Receive Date: 20150226
  Receipt Date: 20150317
  Transmission Date: 20150721
  Serious: Yes (Death, Hospitalization, Other)
  Sender: FDA-Public Use
  Company Number: PHHY2013ZA021070

PATIENT
  Age: 72 Year
  Sex: Male

DRUGS (2)
  1. ACLASTA [Suspect]
     Active Substance: ZOLEDRONIC ACID
     Dosage: UNK
     Route: 042
     Dates: start: 201302
  2. ACLASTA [Suspect]
     Active Substance: ZOLEDRONIC ACID
     Indication: OSTEOPOROSIS
     Dosage: UNK
     Route: 042
     Dates: start: 201202

REACTIONS (12)
  - Malaise [Unknown]
  - Back pain [Unknown]
  - Fall [Unknown]
  - Spinal fracture [Unknown]
  - Nausea [Unknown]
  - Gastric cancer [Fatal]
  - Gastric disorder [Unknown]
  - Metastases to liver [Unknown]
  - Asthenia [Unknown]
  - Tumour ulceration [Unknown]
  - Oesophagitis [Unknown]
  - Weight decreased [Unknown]

NARRATIVE: CASE EVENT DATE: 201202
